FAERS Safety Report 23112181 (Version 1)
Quarter: 2023Q4

REPORT INFORMATION
  Report Type: Spontaneous
  Country: JP (occurrence: JP)
  Receive Date: 20231026
  Receipt Date: 20231026
  Transmission Date: 20240109
  Serious: Yes (Hospitalization)
  Sender: FDA-Public Use
  Company Number: JP-002147023-NVSJ2023JP015306

PATIENT
  Age: 34 Year
  Sex: Female

DRUGS (4)
  1. FEMARA [Suspect]
     Active Substance: LETROZOLE
     Indication: Controlled ovarian stimulation
     Dosage: 2.5 MG
     Route: 048
     Dates: start: 20221109, end: 20221116
  2. FEMARA [Suspect]
     Active Substance: LETROZOLE
     Dosage: 2.5 MG
     Route: 048
     Dates: start: 20221121, end: 20221127
  3. FOLLITROPIN ALFA [Suspect]
     Active Substance: FOLLITROPIN ALFA
     Indication: Controlled ovarian stimulation
     Dosage: UNK
     Route: 065
  4. GANIREST [Concomitant]
     Active Substance: GANIRELIX ACETATE
     Indication: Controlled ovarian stimulation
     Dosage: UNK
     Route: 065

REACTIONS (4)
  - Ovarian hyperstimulation syndrome [Recovered/Resolved]
  - Abdominal distension [Unknown]
  - Ascites [Unknown]
  - Ovarian enlargement [Unknown]

NARRATIVE: CASE EVENT DATE: 20221124
